FAERS Safety Report 8064696 (Version 7)
Quarter: 2013Q1

REPORT INFORMATION
  Report Type: Spontaneous
  Country: US (occurrence: US)
  Receive Date: 20110802
  Receipt Date: 20130108
  Transmission Date: 20140127
  Serious: Yes (Other)
  Sender: FDA-Public Use
  Company Number: US-ROCHE-791208

PATIENT
  Age: 16 Year
  Sex: Male

DRUGS (2)
  1. ACCUTANE [Suspect]
     Indication: ACNE
     Route: 048
  2. PREDNISONE [Concomitant]
     Route: 065

REACTIONS (6)
  - Crohn^s disease [Unknown]
  - Perirectal abscess [Recovered/Resolved]
  - Injury [Unknown]
  - Blood triglycerides increased [Unknown]
  - Blood alkaline phosphatase increased [Unknown]
  - Lip dry [Unknown]
